FAERS Safety Report 15164035 (Version 1)
Quarter: 2018Q3

REPORT INFORMATION
  Report Type: Spontaneous
  Country: US (occurrence: US)
  Receive Date: 20180719
  Receipt Date: 20180719
  Transmission Date: 20181010
  Serious: No
  Sender: FDA-Public Use
  Company Number: US-APOTEX-2017AP015672

PATIENT
  Sex: Male

DRUGS (1)
  1. ATORVASTATIN CALCIUM. [Suspect]
     Active Substance: ATORVASTATIN CALCIUM
     Indication: BLOOD CHOLESTEROL INCREASED
     Dosage: 1 DF, QD
     Route: 065

REACTIONS (5)
  - Drug ineffective [Unknown]
  - Muscle enzyme increased [Unknown]
  - Myalgia [Unknown]
  - Blood triglycerides increased [Recovered/Resolved]
  - Arthralgia [Unknown]
